FAERS Safety Report 11316629 (Version 1)
Quarter: 2015Q3

REPORT INFORMATION
  Report Type: Spontaneous
  Country: US (occurrence: US)
  Receive Date: 20150728
  Receipt Date: 20150728
  Transmission Date: 20151125
  Serious: Yes (Other)
  Sender: FDA-Public Use
  Company Number: US-BEH-2015052770

PATIENT
  Age: 10 Month
  Sex: Male

DRUGS (1)
  1. IVIG [Suspect]
     Active Substance: HUMAN IMMUNOGLOBULIN G
     Indication: KAWASAKI^S DISEASE
     Dosage: TWO DOSES 2 DAYS APART, WITH A CUMULATIVE DOSE OF 4 G/KG
     Route: 042

REACTIONS (8)
  - Leukocytosis [Unknown]
  - Haptoglobin decreased [Unknown]
  - Extravascular haemolysis [Unknown]
  - Red blood cell spherocytes present [Unknown]
  - Haemolytic anaemia [Unknown]
  - Haemoglobin decreased [Unknown]
  - Reticulocyte count increased [Unknown]
  - Anaemia [Unknown]
